FAERS Safety Report 21449346 (Version 4)
Quarter: 2022Q4

REPORT INFORMATION
  Report Type: Spontaneous
  Country: US (occurrence: US)
  Receive Date: 20221013
  Receipt Date: 20221221
  Transmission Date: 20230113
  Serious: No
  Sender: FDA-Public Use
  Company Number: US-ALXN-A202212411

PATIENT
  Age: 13 Year
  Sex: Female
  Weight: 39.6 kg

DRUGS (5)
  1. STRENSIQ [Suspect]
     Active Substance: ASFOTASE ALFA
     Indication: Hypophosphatasia
     Dosage: UNK
     Route: 030
     Dates: start: 2010
  2. STRENSIQ [Suspect]
     Active Substance: ASFOTASE ALFA
     Dosage: 60 MG, SIX TIMES/WEEK
     Route: 030
     Dates: end: 20221009
  3. STRENSIQ [Suspect]
     Active Substance: ASFOTASE ALFA
     Dosage: 60 MG, SIX TIMES/WEEK
     Route: 030
     Dates: start: 20221011
  4. PYRIDOXINE [Concomitant]
     Active Substance: PYRIDOXINE
     Indication: Product used for unknown indication
     Dosage: 50 MG, QD
     Route: 065
  5. ACETAMINOPHEN [Concomitant]
     Active Substance: ACETAMINOPHEN
     Indication: Product used for unknown indication
     Dosage: 500 MG, UNK
     Route: 065

REACTIONS (2)
  - Off label use [Unknown]
  - Drug hypersensitivity [Recovered/Resolved]

NARRATIVE: CASE EVENT DATE: 20221009
